FAERS Safety Report 6155244-8 (Version None)
Quarter: 2009Q2

REPORT INFORMATION
  Report Type: 
  Country: None (occurrence: None)
  Receive Date: 20090415
  Receipt Date: 20090407
  Transmission Date: 20091009
  Serious: Yes (Other)
  Sender: FDA-Public Use
  Company Number: PHEH2008US07285

PATIENT
  Age: 13 Year
  Sex: Female

DRUGS (1)
  1. TRILEPTAL [Suspect]
     Indication: CONVULSION

REACTIONS (3)
  - ABNORMAL DREAMS [None]
  - ALICE IN WONDERLAND SYNDROME [None]
  - CONVULSION [None]
